FAERS Safety Report 9704975 (Version 1)
Quarter: 2013Q4

REPORT INFORMATION
  Report Type: Spontaneous
  Country: US (occurrence: US)
  Receive Date: 20131122
  Receipt Date: 20131122
  Transmission Date: 20140711
  Serious: No
  Sender: FDA-Public Use
  Company Number: US-ABBVIE-13P-163-1133099-00

PATIENT
  Sex: Male
  Weight: 69.01 kg

DRUGS (6)
  1. ANDROGEL [Suspect]
     Indication: BLOOD TESTOSTERONE DECREASED
     Dates: start: 201305, end: 20130718
  2. ANDROGEL [Suspect]
     Dates: start: 20130718
  3. LANTUS [Concomitant]
     Indication: DIABETES MELLITUS
  4. PROSTATE MEDICATION [Concomitant]
     Indication: PRODUCT USED FOR UNKNOWN INDICATION
  5. EYE DROPS [Concomitant]
     Indication: GLAUCOMA
  6. LEVOTHYROXINE [Concomitant]
     Indication: HYPOTHYROIDISM

REACTIONS (1)
  - Erectile dysfunction [Not Recovered/Not Resolved]
